FAERS Safety Report 26085616 (Version 2)
Quarter: 2025Q4

REPORT INFORMATION
  Report Type: Spontaneous
  Country: EU (occurrence: EU)
  Receive Date: 20251125
  Receipt Date: 20251211
  Transmission Date: 20260117
  Serious: Yes (Other)
  Sender: TEVA
  Company Number: EU-TEVA-VS-3395630

PATIENT
  Age: 57 Year
  Sex: Male

DRUGS (1)
  1. SULFAMETHOXAZOLE\TRIMETHOPRIM [Suspect]
     Active Substance: SULFAMETHOXAZOLE\TRIMETHOPRIM
     Indication: Pharyngitis
     Dosage: 800/160 RATIO PHARM FOR 10 DAYS, STOPPED AFTER 7 DAYS
     Route: 065
     Dates: start: 20251020

REACTIONS (15)
  - Stevens-Johnson syndrome [Recovered/Resolved]
  - Eye inflammation [Recovering/Resolving]
  - Lip dry [Unknown]
  - Chapped lips [Unknown]
  - Rash [Recovered/Resolved]
  - Noninfective gingivitis [Unknown]
  - Rash papular [Recovered/Resolved]
  - Stomatitis [Recovered/Resolved]
  - Gastritis [Recovering/Resolving]
  - Nasal dryness [Unknown]
  - Nasal inflammation [Unknown]
  - Gastrointestinal inflammation [Unknown]
  - Gingival bleeding [Unknown]
  - Haemorrhoids [Unknown]
  - Herpes virus infection [Unknown]
